FAERS Safety Report 6017721-X (Version None)
Quarter: 2008Q4

REPORT INFORMATION
  Report Type: 
  Country: None (occurrence: None)
  Receive Date: 20081223
  Receipt Date: 20081215
  Transmission Date: 20090506
  Serious: No
  Sender: FDA-Public Use
  Company Number: US-BAXTER-2008BH000482

PATIENT
  Age: 38 Year
  Sex: Female
  Weight: 61 kg

DRUGS (25)
  1. HEPARIN SODIUM INJECTION [Suspect]
     Indication: THROMBOSIS PROPHYLAXIS
     Route: 042
     Dates: start: 20071228, end: 20071228
  2. HEPARIN SODIUM INJECTION [Suspect]
     Route: 042
     Dates: start: 20071228, end: 20071228
  3. HEPARIN SODIUM INJECTION [Suspect]
     Route: 042
     Dates: start: 20071228, end: 20071228
  4. HEPARIN SODIUM INJECTION [Suspect]
     Route: 042
     Dates: start: 20071228, end: 20071228
  5. HEPARIN SODIUM INJECTION [Suspect]
     Route: 042
     Dates: start: 20071228, end: 20071228
  6. HEPARIN SODIUM INJECTION [Suspect]
     Route: 042
     Dates: start: 20071228, end: 20071228
  7. HEPARIN SODIUM INJECTION [Suspect]
     Route: 042
     Dates: start: 20071228, end: 20071228
  8. HEPARIN SODIUM INJECTION [Suspect]
     Route: 042
     Dates: start: 20071228, end: 20071228
  9. HEPARIN SODIUM INJECTION [Suspect]
     Route: 042
     Dates: start: 20080107, end: 20080107
  10. HEPARIN SODIUM INJECTION [Suspect]
     Route: 042
     Dates: start: 20080107, end: 20080107
  11. HEPARIN SODIUM INJECTION [Suspect]
     Route: 042
     Dates: start: 20080107, end: 20080107
  12. HEPARIN SODIUM INJECTION [Suspect]
     Route: 042
     Dates: start: 20080107, end: 20080107
  13. HEPARIN SODIUM INJECTION [Suspect]
     Route: 042
     Dates: start: 20080107, end: 20080107
  14. HEPARIN SODIUM INJECTION [Suspect]
     Route: 042
     Dates: start: 20080107, end: 20080107
  15. HEPARIN SODIUM INJECTION [Suspect]
     Route: 042
     Dates: start: 20080107, end: 20080107
  16. HEPARIN SODIUM INJECTION [Suspect]
     Route: 042
     Dates: start: 20080107, end: 20080107
  17. SODIUM CHLORIDE [Concomitant]
     Indication: HAEMODIALYSIS
     Dosage: DOSE UNIT:UNKNOWN
     Route: 065
  18. ARANESP [Concomitant]
     Indication: ANAEMIA
     Route: 042
  19. HECTOROL [Concomitant]
     Indication: DRUG USE FOR UNKNOWN INDICATION
     Route: 042
  20. FOLIC ACID [Concomitant]
     Indication: DRUG USE FOR UNKNOWN INDICATION
     Route: 065
  21. RENAGEL [Concomitant]
     Indication: DRUG USE FOR UNKNOWN INDICATION
     Route: 065
  22. LISINOPRIL [Concomitant]
     Indication: DRUG USE FOR UNKNOWN INDICATION
     Route: 065
  23. ATENOLOL [Concomitant]
     Indication: DRUG USE FOR UNKNOWN INDICATION
     Route: 065
  24. CINACALCET [Concomitant]
     Indication: DRUG USE FOR UNKNOWN INDICATION
     Route: 065
  25. MICRONOR [Concomitant]
     Indication: DRUG USE FOR UNKNOWN INDICATION
     Dosage: DOSE UNIT:UNKNOWN
     Route: 065

REACTIONS (6)
  - ABDOMINAL PAIN [None]
  - DRY MOUTH [None]
  - DYSPNOEA [None]
  - HYPOAESTHESIA ORAL [None]
  - OCULAR HYPERAEMIA [None]
  - PARAESTHESIA ORAL [None]
